FAERS Safety Report 6120249-X (Version None)
Quarter: 2009Q1

REPORT INFORMATION
  Report Type: 
  Country: None (occurrence: None)
  Receive Date: 20090312
  Receipt Date: 20090303
  Transmission Date: 20090719
  Serious: Yes (Other)
  Sender: FDA-Public Use
  Company Number: PI-03016

PATIENT
  Age: 1 Day
  Sex: Male

DRUGS (1)
  1. CHLORAPREP ONE-STEP (2%CHG/70%IPA) [Suspect]
     Indication: PREOPERATIVE CARE
     Dosage: 10.5 ML, ONCE, TOPICAL
     Route: 061
     Dates: start: 20090208

REACTIONS (4)
  - APPLICATION SITE BURN [None]
  - APPLICATION SITE ERYTHEMA [None]
  - APPLICATION SITE ULCER [None]
  - APPLICATION SITE VESICLES [None]
